FAERS Safety Report 11846833 (Version 5)
Quarter: 2017Q4

REPORT INFORMATION
  Report Type: Report from Study
  Country: CA (occurrence: CA)
  Receive Date: 20151217
  Receipt Date: 20171218
  Transmission Date: 20180320
  Serious: Yes (Hospitalization)
  Sender: FDA-Public Use
  Company Number: CA-GLAXOSMITHKLINE-CA2015175294

PATIENT
  Age: 67 Year
  Sex: Female
  Weight: 92.8 kg

DRUGS (1)
  1. ALBIGLUTIDE [Suspect]
     Active Substance: ALBIGLUTIDE
     Indication: TYPE 2 DIABETES MELLITUS
     Dosage: UNK
     Dates: start: 20151204, end: 20151204

REACTIONS (1)
  - Vertigo positional [Recovered/Resolved with Sequelae]

NARRATIVE: CASE EVENT DATE: 20151204
